FAERS Safety Report 6839654-9 (Version None)
Quarter: 2010Q3

REPORT INFORMATION
  Report Type: 
  Country: None (occurrence: None)
  Receive Date: 20100708
  Receipt Date: 20100622
  Transmission Date: 20110219
  Serious: Yes (Life-Threatening, Hospitalization)
  Sender: FDA-Public Use
  Company Number: 2010002652

PATIENT
  Age: 62 Year
  Sex: Male

DRUGS (17)
  1. ERLOTINIB HYDROCHLORIDE [Suspect]
     Indication: NON-SMALL CELL LUNG CANCER
     Dosage: 150 MG, QD, ORAL
     Route: 048
     Dates: start: 20071211
  2. NORVASC [Concomitant]
  3. LASIX [Concomitant]
  4. LANSOPRAZOLE [Concomitant]
  5. FLOMAX (MORNIFLUMATE) [Concomitant]
  6. SPIRIVA [Concomitant]
  7. OXYCONTIN [Concomitant]
  8. TEMAZEPAM [Concomitant]
  9. COLACE (DOCUSATE SODIUM) [Concomitant]
  10. OXYGEN (OXYGEN) [Concomitant]
  11. NITROGLYCERIN [Concomitant]
  12. ASPIRIN [Concomitant]
  13. PLAVIX [Concomitant]
  14. ISOSORBIDE (ISOSORBIDE) [Concomitant]
  15. VENTOLIN [Concomitant]
  16. LIPITOR [Concomitant]
  17. OXYCOCET (OXYCOCET) [Concomitant]

REACTIONS (5)
  - CARDIAC FAILURE CONGESTIVE [None]
  - CHEST PAIN [None]
  - DYSPNOEA [None]
  - NO THERAPEUTIC RESPONSE [None]
  - TACHYPNOEA [None]
